FAERS Safety Report 9363382 (Version 1)
Quarter: 2013Q2

REPORT INFORMATION
  Report Type: Spontaneous
  Country: US (occurrence: US)
  Receive Date: 20130624
  Receipt Date: 20130624
  Transmission Date: 20140414
  Serious: Yes (Disabling, Other)
  Sender: FDA-Public Use
  Company Number: US-BAYER-2013-074678

PATIENT
  Sex: Female

DRUGS (1)
  1. CIPRO [Suspect]
     Dosage: UNK

REACTIONS (4)
  - Disability [None]
  - Soft tissue injury [None]
  - Drug hypersensitivity [None]
  - Feeling abnormal [None]
